FAERS Safety Report 8258730-X (Version None)
Quarter: 2012Q2

REPORT INFORMATION
  Report Type: 
  Country: None (occurrence: None)
  Receive Date: 20120404
  Receipt Date: 20120404
  Transmission Date: 20120825
  Serious: Yes (Other)
  Sender: FDA-Public Use
  Company Number: None

PATIENT
  Sex: Female
  Weight: 53.4 kg

DRUGS (2)
  1. GLYBURIDE [Suspect]
     Indication: TYPE 2 DIABETES MELLITUS
     Dosage: 2.5 MG
     Route: 048
     Dates: start: 20120401, end: 20120402
  2. METFORMIN HCL [Concomitant]

REACTIONS (1)
  - HYPOGLYCAEMIA [None]
